FAERS Safety Report 7283608-8 (Version None)
Quarter: 2011Q1

REPORT INFORMATION
  Report Type: 
  Country: None (occurrence: None)
  Receive Date: 20110209
  Receipt Date: 20110131
  Transmission Date: 20110831
  Serious: Yes (Hospitalization)
  Sender: FDA-Public Use
  Company Number: B0686864A

PATIENT
  Age: 64 Year
  Sex: Female

DRUGS (9)
  1. BISOPROLOL [Suspect]
     Indication: ESSENTIAL HYPERTENSION
     Dosage: 5MG PER DAY
     Route: 048
     Dates: end: 20101020
  2. VINPOCETINE [Concomitant]
     Dosage: 5MG TWICE PER DAY
     Route: 048
     Dates: end: 20101020
  3. DETRALEX [Concomitant]
     Route: 048
     Dates: end: 20101020
  4. BUDESONIDE [Concomitant]
     Dosage: 400MCG TWICE PER DAY
  5. POLFENON [Suspect]
     Dosage: 150MG PER DAY
     Route: 048
     Dates: end: 20101020
  6. CAPTOPRIL [Suspect]
     Indication: ESSENTIAL HYPERTENSION
     Dosage: 6.25MG PER DAY
     Route: 065
     Dates: end: 20101020
  7. FORMOTEROL FUMARATE [Concomitant]
     Route: 055
  8. ANTIBIOTIC [Concomitant]
  9. PRESTARIUM [Suspect]
     Indication: ESSENTIAL HYPERTENSION
     Route: 048
     Dates: end: 20101020

REACTIONS (17)
  - HYPOXIA [None]
  - PYREXIA [None]
  - DISTURBANCE IN ATTENTION [None]
  - MALAISE [None]
  - DYSPNOEA [None]
  - LIVER DISORDER [None]
  - PRODUCTIVE COUGH [None]
  - RIGHT VENTRICULAR FAILURE [None]
  - HEPATOCELLULAR INJURY [None]
  - CARDIAC FAILURE [None]
  - INTERNATIONAL NORMALISED RATIO INCREASED [None]
  - ASTHENIA [None]
  - SERUM FERRITIN INCREASED [None]
  - OEDEMA PERIPHERAL [None]
  - HYPERCAPNIA [None]
  - SPUTUM DISCOLOURED [None]
  - DIZZINESS [None]
